FAERS Safety Report 14030632 (Version 4)
Quarter: 2017Q4

REPORT INFORMATION
  Report Type: Report from Study
  Country: CA (occurrence: CA)
  Receive Date: 20171002
  Receipt Date: 20171204
  Transmission Date: 20180321
  Serious: Yes (Hospitalization, Other)
  Sender: FDA-Public Use
  Company Number: CA-ROCHE-1979370

PATIENT
  Age: 46 Year
  Sex: Male

DRUGS (7)
  1. ACTEMRA [Suspect]
     Active Substance: TOCILIZUMAB
     Dosage: INFUSION NUMBER: 11
     Route: 042
     Dates: start: 20170908
  2. ADALAT [Concomitant]
     Active Substance: NIFEDIPINE
  3. METHOTREXATE. [Concomitant]
     Active Substance: METHOTREXATE
  4. PANTOLOC [Concomitant]
     Active Substance: PANTOPRAZOLE SODIUM
  5. ACTEMRA [Suspect]
     Active Substance: TOCILIZUMAB
     Indication: SCLERODERMA
     Dosage: INITIAL DOSING DETAILS UNKNOWN
     Route: 042
     Dates: start: 20160919
  6. ACTEMRA [Suspect]
     Active Substance: TOCILIZUMAB
     Indication: ARTHRITIS
     Dosage: INFUSION NUMBER: 10
     Route: 042
     Dates: start: 20170814
  7. PANTOPRAZOLE [Concomitant]
     Active Substance: PANTOPRAZOLE

REACTIONS (9)
  - Cardiac failure [Not Recovered/Not Resolved]
  - Heart rate increased [Not Recovered/Not Resolved]
  - Dyspnoea [Recovered/Resolved]
  - Pulmonary oedema [Unknown]
  - Disability assessment scale score increased [Unknown]
  - Cardiac disorder [Unknown]
  - Renal disorder [Not Recovered/Not Resolved]
  - Hypertension [Unknown]
  - Infusion related reaction [Recovered/Resolved]

NARRATIVE: CASE EVENT DATE: 20170814
